FAERS Safety Report 14367895 (Version 6)
Quarter: 2018Q3

REPORT INFORMATION
  Report Type: Spontaneous
  Country: GB (occurrence: GB)
  Receive Date: 20180109
  Receipt Date: 20180829
  Transmission Date: 20181010
  Serious: Yes (Other)
  Sender: FDA-Public Use
  Company Number: GB-TEVA-2017-GB-835880

PATIENT
  Sex: Female

DRUGS (3)
  1. IRBESARTAN 75 MG FILM?COATED TABLETS [Suspect]
     Active Substance: IRBESARTAN
     Indication: HYPERTENSION
     Dosage: IN THE MORNING
     Route: 048
  2. MOTENS [Concomitant]
     Active Substance: LACIDIPINE
     Indication: PRODUCT USE IN UNAPPROVED INDICATION
     Dosage: UNK
     Route: 065
  3. IRBESARTAN 150 MG FILM?COATED TABLETS [Suspect]
     Active Substance: IRBESARTAN
     Indication: HYPERTENSION
     Dosage: IN THE MORNING?TOOK 2 TABLETS OF 150MG
     Route: 065

REACTIONS (5)
  - Product physical issue [Unknown]
  - Arrhythmia [Unknown]
  - Wrong drug administered [Unknown]
  - Heart rate irregular [Unknown]
  - Drug dose omission [Unknown]

NARRATIVE: CASE EVENT DATE: 20171113
